FAERS Safety Report 6609214-3 (Version None)
Quarter: 2010Q1

REPORT INFORMATION
  Report Type: 
  Country: None (occurrence: None)
  Receive Date: 20100224
  Receipt Date: 20100211
  Transmission Date: 20100710
  Serious: Yes (Hospitalization)
  Sender: FDA-Public Use
  Company Number: TPA2010A00643

PATIENT
  Age: 55 Year
  Sex: Female
  Weight: 64.8644 kg

DRUGS (7)
  1. PREVACID [Suspect]
     Indication: IMPAIRED GASTRIC EMPTYING
     Dosage: 30 MG, 1 IN 1 D, PER ORAL
     Route: 048
     Dates: start: 20030101
  2. PLAVIX [Concomitant]
  3. PLETAL (CLIOSTAZOL) [Concomitant]
  4. ASPIRN (ACETYLSALICYLIC ACID) [Concomitant]
  5. HYDROCHLOROTHIAZIDE [Concomitant]
  6. LISINOPRIL [Concomitant]
  7. LEVEMIR [Concomitant]

REACTIONS (5)
  - BLINDNESS TRANSIENT [None]
  - BLOOD PRESSURE INCREASED [None]
  - OPERATIVE HAEMORRHAGE [None]
  - OPTIC ISCHAEMIC NEUROPATHY [None]
  - POST PROCEDURAL COMPLICATION [None]
